FAERS Safety Report 6203906-6 (Version None)
Quarter: 2009Q2

REPORT INFORMATION
  Report Type: 
  Country: None (occurrence: None)
  Receive Date: 20090527
  Receipt Date: 20090515
  Transmission Date: 20091009
  Serious: Yes (Death, Hospitalization)
  Sender: FDA-Public Use
  Company Number: A0776696A

PATIENT
  Age: 67 Year
  Sex: Male
  Weight: 63.6 kg

DRUGS (1)
  1. AVANDIA [Suspect]
     Dosage: 8MG PER DAY
     Route: 048
     Dates: start: 20021220, end: 20061122

REACTIONS (1)
  - MYOCARDIAL INFARCTION [None]
